FAERS Safety Report 8533291-6 (Version None)
Quarter: 2012Q3

REPORT INFORMATION
  Report Type: 
  Country: None (occurrence: None)
  Receive Date: 20120724
  Receipt Date: 20120702
  Transmission Date: 20120928
  Serious: No
  Sender: FDA-Public Use
  Company Number: US-ROXANE LABORATORIES, INC.-2012-RO-01511RO

PATIENT
  Sex: Female

DRUGS (5)
  1. BUTORPHANOL TARTRATE [Suspect]
     Indication: MIGRAINE
     Route: 045
  2. CLONOPIN [Concomitant]
  3. BUTORPHANOL TARTRATE [Suspect]
     Indication: PAIN
  4. LEXAPRO [Concomitant]
  5. TOPAMAX [Concomitant]

REACTIONS (2)
  - PRODUCT QUALITY ISSUE [None]
  - DRUG INEFFECTIVE [None]
